FAERS Safety Report 5552745-8 (Version None)
Quarter: 2007Q4

REPORT INFORMATION
  Report Type: 
  Country: None (occurrence: None)
  Receive Date: 20071212
  Receipt Date: 20070627
  Transmission Date: 20080405
  Serious: No
  Sender: FDA-Public Use
  Company Number: US-AMGEN-KDL228898

PATIENT
  Sex: Male
  Weight: 149.8 kg

DRUGS (7)
  1. ENBREL [Suspect]
     Indication: PSORIATIC ARTHROPATHY
     Route: 058
     Dates: start: 20050601, end: 20070401
  2. ENBREL [Suspect]
     Indication: PSORIASIS
  3. METHOTREXATE [Concomitant]
  4. ACTOS [Concomitant]
  5. FUROSEMIDE [Concomitant]
  6. ALEVE [Concomitant]
  7. TRIAMCINOLONE [Concomitant]
     Route: 061

REACTIONS (3)
  - INTERTRIGO CANDIDA [None]
  - PSORIASIS [None]
  - PSORIATIC ARTHROPATHY [None]
